FAERS Safety Report 15949163 (Version 1)
Quarter: 2019Q1

REPORT INFORMATION
  Report Type: Spontaneous
  Country: US (occurrence: US)
  Receive Date: 20190212
  Receipt Date: 20190212
  Transmission Date: 20190417
  Serious: Yes (Disabling, Other)
  Sender: FDA-Public Use
  Company Number: None

PATIENT
  Age: 60 Year
  Sex: Female
  Weight: 66.6 kg

DRUGS (1)
  1. ENBREL [Suspect]
     Active Substance: ETANERCEPT
     Indication: PSORIATIC ARTHROPATHY

REACTIONS (4)
  - Dysarthria [None]
  - Dizziness [None]
  - Asthenia [None]
  - Neuropathy peripheral [None]

NARRATIVE: CASE EVENT DATE: 20180425
